FAERS Safety Report 9048596 (Version 1)
Quarter: 2013Q1

REPORT INFORMATION
  Report Type: Spontaneous
  Country: US (occurrence: None)
  Receive Date: 20130130
  Receipt Date: 20130130
  Transmission Date: 20140127
  Serious: Yes (Hospitalization)
  Sender: FDA-Public Use
  Company Number: None

PATIENT
  Age: 89 Year
  Sex: Male
  Weight: 77.3 kg

DRUGS (15)
  1. ASA [Suspect]
     Indication: CEREBROVASCULAR ACCIDENT
     Dosage: CHRONIC
     Route: 048
  2. IBUPROFEN [Suspect]
     Indication: PAIN
     Dosage: 16HR PRN CHRONIC
     Route: 048
  3. BUMEX [Concomitant]
  4. CALCITROL [Concomitant]
  5. ADVAIR DISKUS [Concomitant]
  6. LEVOTHYROXINE [Concomitant]
  7. PHENBARB [Concomitant]
  8. OMEPRAZOLE [Concomitant]
  9. PREDNISONE [Concomitant]
  10. CALCIUM CARB [Concomitant]
  11. ATROVENT [Concomitant]
  12. VIT B [Concomitant]
  13. TEGRETOL [Concomitant]
  14. LOPRESSOR [Concomitant]
  15. POTASSIUM CHLORIDE [Concomitant]

REACTIONS (6)
  - Fall [None]
  - Convulsion [None]
  - Subarachnoid haemorrhage [None]
  - Dysarthria [None]
  - Pneumonia aspiration [None]
  - Hypernatraemia [None]
